FAERS Safety Report 5116656-4 (Version None)
Quarter: 2006Q3

REPORT INFORMATION
  Report Type: 
  Country: None (occurrence: None)
  Receive Date: 20060928
  Receipt Date: 20060725
  Transmission Date: 20061208
  Serious: Yes (Other)
  Sender: FDA-Public Use
  Company Number: FR-GLAXOSMITHKLINE-B0432255A

PATIENT
  Age: 34 Year
  Sex: Female

DRUGS (5)
  1. ZOPHREN [Suspect]
     Route: 065
  2. IFOSFAMIDE [Suspect]
     Dosage: 4650MG CYCLIC
     Route: 042
     Dates: start: 20060307, end: 20060412
  3. MESNA [Suspect]
     Route: 065
  4. DEXAMETHASONE TAB [Suspect]
     Route: 065
  5. DOXORUBICIN HCL [Suspect]
     Dosage: 36MG PER DAY
     Route: 042
     Dates: start: 20060307, end: 20060412

REACTIONS (4)
  - CHILLS [None]
  - DRUG EXPOSURE DURING PREGNANCY [None]
  - LEUKOCYTOSIS [None]
  - PLACENTAL DISORDER [None]
